FAERS Safety Report 14174344 (Version 1)
Quarter: 2017Q4

REPORT INFORMATION
  Report Type: Spontaneous
  Country: SI (occurrence: SI)
  Receive Date: 20171109
  Receipt Date: 20171109
  Transmission Date: 20180321
  Serious: Yes (Hospitalization, Other)
  Sender: FDA-Public Use
  Company Number: SI-BAYER-2017-214786

PATIENT
  Age: 78 Year
  Sex: Male

DRUGS (7)
  1. LACIDIPINE [Concomitant]
     Active Substance: LACIDIPINE
     Dosage: 4 MG, QD
  2. PERINDOPRIL [Concomitant]
     Active Substance: PERINDOPRIL
     Dosage: 4 MG, QD
  3. METFORMIN [Concomitant]
     Active Substance: METFORMIN HYDROCHLORIDE
     Dosage: 850 MG, TID
  4. INDAPAMIDE. [Concomitant]
     Active Substance: INDAPAMIDE
     Dosage: 1.5 MG, QD
  5. ASPIRIN PROTECT 100 MG [Suspect]
     Active Substance: ASPIRIN
     Indication: ANTIPLATELET THERAPY
     Dosage: 100 MG, QD
  6. TICAGRELOR. [Concomitant]
     Active Substance: TICAGRELOR
     Indication: ANTIPLATELET THERAPY
     Dosage: 90 MG, BID
  7. ROSUVASTATIN. [Concomitant]
     Active Substance: ROSUVASTATIN
     Indication: THROMBOSIS PROPHYLAXIS
     Dosage: 15 MG, QD

REACTIONS (9)
  - Left ventricular dysfunction [None]
  - Chest pain [Recovered/Resolved]
  - Ejection fraction decreased [None]
  - Coronary artery restenosis [None]
  - Left atrial enlargement [None]
  - Suffocation feeling [None]
  - Palpitations [None]
  - Mitral valve incompetence [None]
  - Atrial fibrillation [Recovered/Resolved]
